FAERS Safety Report 9929532 (Version 2)
Quarter: 2014Q1

REPORT INFORMATION
  Report Type: Spontaneous
  Country: IT (occurrence: IT)
  Receive Date: 20140227
  Receipt Date: 20140307
  Transmission Date: 20141002
  Serious: Yes (Hospitalization)
  Sender: FDA-Public Use
  Company Number: PHHY2014IT022422

PATIENT
  Sex: Male

DRUGS (1)
  1. AMOXICILLIN-CLAVULANIC ACID [Suspect]
     Route: 048
     Dates: start: 20140211, end: 20140211

REACTIONS (6)
  - Hypertension [Recovered/Resolved]
  - Dysphagia [Recovered/Resolved]
  - Eyelid oedema [Recovered/Resolved]
  - Laryngeal oedema [Recovered/Resolved]
  - Urticaria [Recovered/Resolved]
  - Dyspnoea [Recovered/Resolved]
